FAERS Safety Report 7952824-1 (Version None)
Quarter: 2011Q4

REPORT INFORMATION
  Report Type: 
  Country: None (occurrence: None)
  Receive Date: 20111201
  Receipt Date: 20111123
  Transmission Date: 20120403
  Serious: Yes (Hospitalization, Other)
  Sender: FDA-Public Use
  Company Number: US-US-EMD SERONO, INC.-7098348

PATIENT
  Sex: Female

DRUGS (3)
  1. REBIF [Suspect]
     Indication: PRODUCT USED FOR UNKNOWN INDICATION
     Route: 058
     Dates: start: 20110525, end: 20111004
  2. ATACAND [Concomitant]
  3. CARVEDILOL [Concomitant]

REACTIONS (5)
  - HEPATIC STEATOSIS [None]
  - LIVER DISORDER [None]
  - CARDIAC DISORDER [None]
  - WHITE BLOOD CELL COUNT INCREASED [None]
  - ENDOMETRIOSIS [None]
